FAERS Safety Report 4803093-2 (Version None)
Quarter: 2005Q4

REPORT INFORMATION
  Report Type: 
  Country: None (occurrence: None)
  Receive Date: 20051017
  Receipt Date: 20051017
  Transmission Date: 20060501
  Serious: Yes (Other)
  Sender: FDA-Public Use
  Company Number: None

PATIENT
  Sex: Female
  Weight: 79.3795 kg

DRUGS (1)
  1. CARBAMAZEPINE [Suspect]
     Dosage: 1200MG   QD   PO
     Route: 048

REACTIONS (1)
  - HYPONATRAEMIA [None]
